FAERS Safety Report 9156974 (Version 2)
Quarter: 2013Q4

REPORT INFORMATION
  Report Type: Spontaneous
  Country: GB (occurrence: GB)
  Receive Date: 20130312
  Receipt Date: 20131021
  Transmission Date: 20140711
  Serious: Yes (Life-Threatening, Hospitalization)
  Sender: FDA-Public Use
  Company Number: PHFR2013GB001588

PATIENT
  Age: 47 Year
  Sex: Male

DRUGS (7)
  1. CLOZAPINE [Suspect]
     Indication: SCHIZOPHRENIA
     Dosage: 650 MG, QD
     Route: 048
     Dates: start: 19910101, end: 20130214
  2. CLOZAPINE [Suspect]
     Dosage: 100 MG MANE, 100 MG LUNCHTIME, 450 MG NOCTE
     Route: 048
     Dates: start: 19910101, end: 20130214
  3. HYOSCINE HYDROBROMIDE [Concomitant]
     Indication: SALIVARY HYPERSECRETION
     Dosage: 300 UG, TID
  4. HYOSCINE HYDROBROMIDE [Concomitant]
     Indication: SALIVARY HYPERSECRETION
  5. LAXATIVES [Concomitant]
     Dosage: UNK
  6. VALPROIC ACID [Concomitant]
     Indication: SCHIZOPHRENIA
     Dosage: 1500 MG, QD
     Route: 048
  7. VALPROIC ACID [Concomitant]
     Indication: SCHIZOPHRENIA
     Dosage: 500 MG MANE, 1G NOCTE
     Route: 048

REACTIONS (8)
  - Abdominal pain [Unknown]
  - Depressed level of consciousness [Unknown]
  - Pneumonia aspiration [Recovering/Resolving]
  - Intestinal obstruction [Recovering/Resolving]
  - Constipation [Not Recovered/Not Resolved]
  - Faecaloma [Recovering/Resolving]
  - Wound complication [Unknown]
  - Antipsychotic drug level increased [Unknown]
